FAERS Safety Report 13935771 (Version 1)
Quarter: 2017Q3

REPORT INFORMATION
  Report Type: Spontaneous
  Country: GB (occurrence: GB)
  Receive Date: 20170905
  Receipt Date: 20170905
  Transmission Date: 20171127
  Serious: Yes (Other)
  Sender: FDA-Public Use
  Company Number: GB-ASTELLAS-2017US034761

PATIENT
  Age: 45 Year
  Sex: Male

DRUGS (2)
  1. TACROLIMUS. [Suspect]
     Active Substance: TACROLIMUS
     Indication: RENAL TRANSPLANT
     Dosage: UNK UNK, UNKNOWN FREQ.
     Route: 065
  2. MYCOPHENOLATE MOFETIL. [Suspect]
     Active Substance: MYCOPHENOLATE MOFETIL
     Indication: RENAL TRANSPLANT
     Dosage: UNK UNK, UNKNOWN FREQ.
     Route: 065

REACTIONS (7)
  - Cytomegalovirus infection [Unknown]
  - Kidney transplant rejection [Unknown]
  - Anaemia [Unknown]
  - Renal artery stenosis [Unknown]
  - Post transplant lymphoproliferative disorder [Recovering/Resolving]
  - Angioplasty [Unknown]
  - Epstein-Barr virus infection [Unknown]
